FAERS Safety Report 8094076-0 (Version None)
Quarter: 2012Q1

REPORT INFORMATION
  Report Type: 
  Country: None (occurrence: None)
  Receive Date: 20120131
  Receipt Date: 20120118
  Transmission Date: 20120608
  Serious: Yes (Death)
  Sender: FDA-Public Use
  Company Number: FR-ASTELLAS-2012US000659

PATIENT
  Sex: Female

DRUGS (1)
  1. AMBISOME [Suspect]
     Indication: ASPERGILLOSIS
     Dosage: UNK
     Route: 065

REACTIONS (2)
  - HAEMORRHAGE [None]
  - SEPSIS [None]
